FAERS Safety Report 13002292 (Version 1)
Quarter: 2016Q4

REPORT INFORMATION
  Report Type: Spontaneous
  Country: US (occurrence: US)
  Receive Date: 20161206
  Receipt Date: 20161206
  Transmission Date: 20170207
  Serious: Yes (Death, Other)
  Sender: FDA-Public Use
  Company Number: US-ASTELLAS-2016US047541

PATIENT
  Age: 19 Year
  Sex: Male

DRUGS (1)
  1. TACROLIMUS. [Suspect]
     Active Substance: TACROLIMUS
     Indication: GRAFT VERSUS HOST DISEASE IN LIVER
     Dosage: UNK UNK, UNKNOWN FREQ.
     Route: 065

REACTIONS (11)
  - Gastrointestinal candidiasis [Unknown]
  - Gastroenteritis adenovirus [Unknown]
  - Hepatic function abnormal [Unknown]
  - Cytomegalovirus infection [Unknown]
  - Renal impairment [Unknown]
  - Multiple organ dysfunction syndrome [Fatal]
  - Aspergillus infection [Unknown]
  - Cerebral toxoplasmosis [Unknown]
  - Respiratory distress [Unknown]
  - Epstein-Barr virus antibody positive [Unknown]
  - Off label use [Unknown]
